FAERS Safety Report 21015568 (Version 1)
Quarter: 2022Q2

REPORT INFORMATION
  Report Type: Spontaneous
  Country: IN (occurrence: IN)
  Receive Date: 20220628
  Receipt Date: 20220628
  Transmission Date: 20220721
  Serious: Yes (Hospitalization)
  Sender: FDA-Public Use
  Company Number: IN-Axellia-004364

PATIENT
  Age: 23 Year
  Sex: Male

DRUGS (2)
  1. COLISTIMETHATE SODIUM [Suspect]
     Active Substance: COLISTIMETHATE SODIUM
     Indication: Acinetobacter infection
     Dosage: 9 MILLION UNITS (MU) LOADING DOSE FOLLOWED BY 3 MU 8 HOURLY
     Route: 051
  2. MEROPENEM [Concomitant]
     Active Substance: MEROPENEM
     Indication: Acinetobacter infection
     Dosage: 1 G 8 HOURLY

REACTIONS (1)
  - Bartter^s syndrome [Recovered/Resolved]
